FAERS Safety Report 13084107 (Version 2)
Quarter: 2017Q1

REPORT INFORMATION
  Report Type: Spontaneous
  Country: US (occurrence: US)
  Receive Date: 20170104
  Receipt Date: 20170117
  Transmission Date: 20170428
  Serious: Yes (Hospitalization, Other)
  Sender: FDA-Public Use
  Company Number: US-DRREDDYS-USA/USA/16/0085842

PATIENT
  Sex: Female

DRUGS (2)
  1. ZENATANE [Suspect]
     Active Substance: ISOTRETINOIN
     Indication: PRODUCT USED FOR UNKNOWN INDICATION
     Route: 048
     Dates: start: 20161109
  2. ZENATANE [Suspect]
     Active Substance: ISOTRETINOIN
     Route: 048
     Dates: start: 20161114

REACTIONS (6)
  - Depression [Unknown]
  - Eczema [Unknown]
  - Dermatitis atopic [Unknown]
  - Drug eruption [Unknown]
  - Skin infection [Unknown]
  - Genital herpes [Unknown]
